FAERS Safety Report 25732409 (Version 1)
Quarter: 2025Q3

REPORT INFORMATION
  Report Type: Spontaneous
  Country: CH (occurrence: CH)
  Receive Date: 20250827
  Receipt Date: 20250827
  Transmission Date: 20251021
  Serious: Yes (Other)
  Sender: MERCK SHARP & DOHME LLC
  Company Number: CH-009507513-2321504

PATIENT
  Age: 75 Year

DRUGS (1)
  1. KEYTRUDA [Suspect]
     Active Substance: PEMBROLIZUMAB
     Indication: Prostatic urothelial carcinoma
     Dates: start: 2021, end: 2023

REACTIONS (1)
  - Transitional cell carcinoma recurrent [Unknown]

NARRATIVE: CASE EVENT DATE: 20250101
